FAERS Safety Report 7705200-0 (Version None)
Quarter: 2011Q3

REPORT INFORMATION
  Report Type: 
  Country: None (occurrence: None)
  Receive Date: 20110818
  Receipt Date: 20110803
  Transmission Date: 20111222
  Serious: Yes (Hospitalization)
  Sender: FDA-Public Use
  Company Number: 2011050208

PATIENT
  Age: 75 Year
  Sex: Female
  Weight: 179.5 kg

DRUGS (22)
  1. TORSEMIDE [Suspect]
     Indication: CARDIAC FAILURE CONGESTIVE
     Dosage: 20 MG (20 MG, 1 IN 1 D), ORAL
     Route: 048
     Dates: start: 20110303, end: 20110319
  2. NAPROXEN SODIUM [Suspect]
     Indication: MUSCULOSKELETAL PAIN
     Dosage: 1000 MG (500 MG, 2 IN 1 D), ORAL
     Route: 048
     Dates: start: 20110303, end: 20110318
  3. VISIPAQUE [Suspect]
     Indication: CATHETERISATION CARDIAC
     Dosage: (265 MILLILITER), INTRAVENOUS
     Route: 042
     Dates: start: 20110317, end: 20110317
  4. CANGRELOR (CANGRELOR) [Suspect]
     Dosage: INTAKE NOT ASSURED (CODE NOT BROKEN) , INTRAVEN OUS BOLUS
     Route: 040
     Dates: start: 20110317, end: 20110317
  5. CLOPIDOGREL [Suspect]
     Indication: PERCUTANEOUS CORONARY INTERVENTION
     Dosage: INTAKE NOT ASSURED (CODE NOT BROKEN), INTRAVENOUS BOLUS
     Route: 040
     Dates: start: 20110317, end: 20110317
  6. ALBUTEROL SULFATE AUTOHALER [Concomitant]
  7. SIMVASTATIN [Concomitant]
  8. TIOTROPIUM (TIOTROPIUM) [Concomitant]
  9. WARFARIN SODIUM [Concomitant]
  10. GABAPENTIN [Concomitant]
  11. METFORMIN HCL [Concomitant]
  12. METOLAZONE [Suspect]
     Indication: CARDIAC FAILURE CONGESTIVE
     Dosage: 2.5 MG (2.5 MG, 1 IN 1 D), ORAL
     Route: 048
     Dates: start: 20110303, end: 20110319
  13. ALLOPURINOL [Concomitant]
  14. HEPARIN [Concomitant]
  15. ASPIRIN [Concomitant]
  16. POTASSIUM CHLORIDE [Concomitant]
  17. ROPINIROLE [Concomitant]
  18. GLIPIZIDE [Concomitant]
  19. NITROGLYCERIN (GLYCERYL TRINITATE) [Concomitant]
  20. BIVALIRUDIN (BIVALIRUDIN) [Concomitant]
  21. DILTIAZEM [Concomitant]
  22. METOPROLOL TARTRATE [Concomitant]

REACTIONS (6)
  - CORONARY ARTERY STENOSIS [None]
  - NAUSEA [None]
  - VOMITING [None]
  - DIARRHOEA [None]
  - RENAL FAILURE ACUTE [None]
  - CHEST PAIN [None]
